FAERS Safety Report 10502176 (Version 2)
Quarter: 2014Q4

REPORT INFORMATION
  Report Type: Spontaneous
  Country: US (occurrence: US)
  Receive Date: 20141007
  Receipt Date: 20141015
  Transmission Date: 20150528
  Serious: No
  Sender: FDA-Public Use
  Company Number: US-PFIZER INC-2014273158

PATIENT
  Age: 65 Year
  Sex: Female

DRUGS (1)
  1. XELJANZ [Suspect]
     Active Substance: TOFACITINIB CITRATE
     Indication: RHEUMATOID ARTHRITIS
     Dosage: UNK

REACTIONS (1)
  - Tachyphylaxis [Unknown]
